FAERS Safety Report 6147705-2 (Version None)
Quarter: 2009Q2

REPORT INFORMATION
  Report Type: 
  Country: None (occurrence: None)
  Receive Date: 20090408
  Receipt Date: 20090406
  Transmission Date: 20091009
  Serious: Yes (Death, Other)
  Sender: FDA-Public Use
  Company Number: ES-ASTRAZENECA-2009AC01019

PATIENT
  Age: 76 Year
  Sex: Female

DRUGS (8)
  1. OMEPRAZOL [Suspect]
     Indication: PROPHYLAXIS
     Route: 048
     Dates: start: 20080901, end: 20090201
  2. ADIRO [Suspect]
     Indication: MYOCARDIAL ISCHAEMIA
     Route: 048
     Dates: start: 20080901, end: 20090201
  3. CLOPIDOGREL [Suspect]
     Indication: MYOCARDIAL ISCHAEMIA
     Route: 048
     Dates: start: 20080901, end: 20090201
  4. ZARATOR [Suspect]
     Indication: HYPERCHOLESTEROLAEMIA
     Route: 048
     Dates: start: 20080901, end: 20090201
  5. ENALAPRIL [Suspect]
     Indication: HYPERTENSION
     Route: 048
     Dates: start: 20080901, end: 20090201
  6. EMCONCOR [Suspect]
     Indication: MYOCARDIAL ISCHAEMIA
     Route: 048
     Dates: start: 20080901, end: 20090201
  7. SUTRIL [Suspect]
     Route: 048
     Dates: start: 20080901, end: 20090201
  8. ALPRAZOLAM [Suspect]
     Route: 048
     Dates: start: 20080901, end: 20090201

REACTIONS (4)
  - CHOLURIA [None]
  - HEPATIC NECROSIS [None]
  - JAUNDICE CHOLESTATIC [None]
  - VOMITING [None]
